FAERS Safety Report 12448628 (Version 1)
Quarter: 2016Q2

REPORT INFORMATION
  Report Type: Report from Study
  Country: AU (occurrence: AU)
  Receive Date: 20160608
  Receipt Date: 20160608
  Transmission Date: 20160815
  Serious: Yes (Hospitalization, Other)
  Sender: FDA-Public Use
  Company Number: AU-JNJFOC-20151006800

PATIENT
  Sex: Male

DRUGS (1)
  1. RISPERDAL CONSTA [Suspect]
     Active Substance: RISPERIDONE
     Indication: SCHIZOPHRENIA
     Route: 065

REACTIONS (6)
  - Abnormal behaviour [Unknown]
  - Aggression [Unknown]
  - Erection increased [Unknown]
  - Treatment noncompliance [Unknown]
  - Suicide attempt [Unknown]
  - Psychotic behaviour [Unknown]

NARRATIVE: CASE EVENT DATE: 201511
